FAERS Safety Report 8172847-X (Version None)
Quarter: 2012Q1

REPORT INFORMATION
  Report Type: 
  Country: None (occurrence: None)
  Receive Date: 20120229
  Receipt Date: 20120229
  Transmission Date: 20120608
  Serious: Yes (Life-Threatening, Hospitalization)
  Sender: FDA-Public Use
  Company Number: None

PATIENT
  Age: 55 Year
  Sex: Male
  Weight: 97.8 kg

DRUGS (1)
  1. GEMZAR [Suspect]

REACTIONS (3)
  - CARDIAC ARREST [None]
  - ANGINA PECTORIS [None]
  - ELECTROCARDIOGRAM CHANGE [None]
